FAERS Safety Report 21757852 (Version 1)
Quarter: 2022Q4

REPORT INFORMATION
  Report Type: Spontaneous
  Country: US (occurrence: None)
  Receive Date: 20221221
  Receipt Date: 20221221
  Transmission Date: 20230112
  Serious: Yes (Hospitalization)
  Sender: FDA-Public Use
  Company Number: US-ROCHE-3152153

PATIENT
  Age: 84 Year
  Sex: Female
  Weight: 58.9 kg

DRUGS (1)
  1. ALTEPLASE [Suspect]
     Active Substance: ALTEPLASE
     Indication: Cerebrovascular accident
     Route: 041
     Dates: start: 20220724

REACTIONS (3)
  - Cerebral haemorrhage [Not Recovered/Not Resolved]
  - Off label use [Unknown]
  - Hypersomnia [Unknown]

NARRATIVE: CASE EVENT DATE: 20220725
